FAERS Safety Report 5873842-3 (Version None)
Quarter: 2008Q3

REPORT INFORMATION
  Report Type: 
  Country: None (occurrence: None)
  Receive Date: 20080903
  Receipt Date: 20080903
  Transmission Date: 20090109
  Serious: Yes (Life-Threatening)
  Sender: FDA-Public Use
  Company Number: None

PATIENT
  Sex: Female
  Weight: 61.2356 kg

DRUGS (1)
  1. YAZ [Suspect]
     Indication: MENORRHAGIA
     Dosage: 1 DAILY
     Dates: start: 20070201, end: 20070501

REACTIONS (3)
  - LUNG DISORDER [None]
  - PULMONARY EMBOLISM [None]
  - THROMBOSIS [None]
